FAERS Safety Report 11898920 (Version 1)
Quarter: 2016Q1

REPORT INFORMATION
  Report Type: Spontaneous
  Country: FR (occurrence: FR)
  Receive Date: 20160108
  Receipt Date: 20160108
  Transmission Date: 20160526
  Serious: Yes (Hospitalization)
  Sender: FDA-Public Use
  Company Number: FR-PFIZER INC-2015478239

PATIENT
  Age: 94 Year
  Sex: Male

DRUGS (13)
  1. TRIFLUCAN [Suspect]
     Active Substance: FLUCONAZOLE
     Indication: ORAL FUNGAL INFECTION
     Dosage: 50 MG, 1X/DAY
     Route: 048
     Dates: start: 20140117, end: 20140121
  2. LANSOPRAZOLE. [Concomitant]
     Active Substance: LANSOPRAZOLE
  3. ZOXAN [Concomitant]
     Active Substance: DOXAZOSIN MESYLATE
  4. LASILIX [Concomitant]
     Active Substance: FUROSEMIDE
  5. TAHOR [Suspect]
     Active Substance: ATORVASTATIN CALCIUM
     Dosage: 10 MG, 1X/DAY
     Route: 048
     Dates: end: 20140120
  6. DETENSIEL /00802601/ [Concomitant]
     Active Substance: BISOPROLOL FUMARATE
  7. PLAVIX [Concomitant]
     Active Substance: CLOPIDOGREL BISULFATE
  8. UMULINE [Concomitant]
     Active Substance: INSULIN HUMAN
  9. INSPRA [Suspect]
     Active Substance: EPLERENONE
     Dosage: 25 MG, 1X/DAY
     Route: 048
     Dates: end: 20140118
  10. PREVISCAN [Concomitant]
     Active Substance: FLUINDIONE
  11. ISOPTIN [Concomitant]
     Active Substance: VERAPAMIL HYDROCHLORIDE
  12. LEVOTHYROX [Concomitant]
     Active Substance: LEVOTHYROXINE
  13. KEPPRA [Concomitant]
     Active Substance: LEVETIRACETAM

REACTIONS (1)
  - Hepatocellular injury [Recovering/Resolving]

NARRATIVE: CASE EVENT DATE: 20140120
